FAERS Safety Report 6540036-8 (Version None)
Quarter: 2010Q1

REPORT INFORMATION
  Report Type: 
  Country: None (occurrence: None)
  Receive Date: 20100111
  Receipt Date: 20091218
  Transmission Date: 20100710
  Serious: Yes (Hospitalization)
  Sender: FDA-Public Use
  Company Number: 20091218CINRY1314

PATIENT
  Age: 40 Year
  Sex: Female

DRUGS (2)
  1. CINRYZE [Suspect]
     Indication: HEREDITARY ANGIOEDEMA
     Dosage: 1000 UNIT, 2 IN 1 WK, INTRAVENOUS
     Route: 042
     Dates: start: 20091118, end: 20091210
  2. CINRYZE [Suspect]
     Indication: PROPHYLAXIS
     Dosage: 1000 UNIT, 2 IN 1 WK, INTRAVENOUS
     Route: 042
     Dates: start: 20091118, end: 20091210

REACTIONS (7)
  - BLOOD CULTURE POSITIVE [None]
  - DEVICE RELATED INFECTION [None]
  - ENTEROCOCCAL SEPSIS [None]
  - ESCHERICHIA SEPSIS [None]
  - OXYGEN SATURATION DECREASED [None]
  - PYREXIA [None]
  - STREPTOCOCCAL SEPSIS [None]
